FAERS Safety Report 9754274 (Version 1)
Quarter: 2013Q4

REPORT INFORMATION
  Report Type: Spontaneous
  Country: US (occurrence: US)
  Receive Date: 20131213
  Receipt Date: 20131213
  Transmission Date: 20140711
  Serious: No
  Sender: FDA-Public Use
  Company Number: US-TEVA-408968USA

PATIENT
  Age: 37 Year
  Sex: Female
  Weight: 99.88 kg

DRUGS (7)
  1. PARAGARD 380A [Suspect]
     Indication: CONTRACEPTION
     Route: 015
     Dates: start: 20130102
  2. VITAMIN D [Concomitant]
     Indication: VITAMIN D DEFICIENCY
  3. LAMICTAL [Concomitant]
     Indication: BIPOLAR DISORDER
  4. XANAX [Concomitant]
     Indication: ANXIETY
  5. BUTALBITAL/CAFFEINE/PARACETAMOL [Concomitant]
     Indication: MIGRAINE
     Dosage: AS NEEDED
  6. PROPANOLOL [Concomitant]
     Indication: MIGRAINE
  7. VIIBRYD [Concomitant]
     Indication: BIPOLAR DISORDER

REACTIONS (6)
  - Abdominal pain [Not Recovered/Not Resolved]
  - Back pain [Not Recovered/Not Resolved]
  - Menorrhagia [Not Recovered/Not Resolved]
  - Pain [Not Recovered/Not Resolved]
  - Anaemia [Not Recovered/Not Resolved]
  - Metrorrhagia [Not Recovered/Not Resolved]
